FAERS Safety Report 19649229 (Version 6)
Quarter: 2022Q3

REPORT INFORMATION
  Report Type: Report from Study
  Country: US (occurrence: US)
  Receive Date: 20210802
  Receipt Date: 20220713
  Transmission Date: 20221027
  Serious: Yes (Other)
  Sender: FDA-Public Use
  Company Number: NVSC2021US173680

PATIENT
  Sex: Male

DRUGS (1)
  1. ENTRESTO [Suspect]
     Active Substance: SACUBITRIL\VALSARTAN
     Indication: Product used for unknown indication
     Dosage: 1 DOSAGE FORM (49/51), BID
     Route: 048

REACTIONS (12)
  - Rectal haemorrhage [Not Recovered/Not Resolved]
  - Swelling [Unknown]
  - Oedema peripheral [Unknown]
  - Pain in extremity [Not Recovered/Not Resolved]
  - Eye disorder [Unknown]
  - Weight increased [Unknown]
  - Dizziness postural [Not Recovered/Not Resolved]
  - Muscle spasms [Not Recovered/Not Resolved]
  - Dehydration [Recovering/Resolving]
  - Weight decreased [Recovering/Resolving]
  - Arteriosclerosis [Not Recovered/Not Resolved]
  - Product supply issue [Unknown]
